FAERS Safety Report 6353394-4 (Version None)
Quarter: 2009Q3

REPORT INFORMATION
  Report Type: 
  Country: None (occurrence: None)
  Receive Date: 20090912
  Receipt Date: 20090622
  Transmission Date: 20100115
  Serious: No
  Sender: FDA-Public Use
  Company Number: US-ABBOTT-08P-163-0474348-00

PATIENT
  Sex: Female
  Weight: 108.96 kg

DRUGS (5)
  1. HUMIRA [Suspect]
     Indication: PSORIATIC ARTHROPATHY
     Route: 050
     Dates: start: 20080601
  2. HUMIRA [Suspect]
     Indication: PSORIASIS
  3. VERAPAMIL [Concomitant]
     Indication: HYPERTENSION
     Route: 048
  4. ISONIAZID [Concomitant]
     Indication: TUBERCULOSIS TEST POSITIVE
     Route: 048
     Dates: start: 20080401
  5. DIOVAN HCT [Concomitant]
     Indication: HYPERTENSION
     Route: 048

REACTIONS (4)
  - BLOOD TRIGLYCERIDES INCREASED [None]
  - INCORRECT DOSE ADMINISTERED [None]
  - OROPHARYNGEAL PAIN [None]
  - STOMATITIS [None]
